FAERS Safety Report 15062178 (Version 2)
Quarter: 2018Q3

REPORT INFORMATION
  Report Type: Report from Study
  Country: PL (occurrence: PL)
  Receive Date: 20180625
  Receipt Date: 20180706
  Transmission Date: 20181010
  Serious: Yes (Hospitalization)
  Sender: FDA-Public Use
  Company Number: PL-EXELIXIS-XL18418014580

PATIENT
  Age: 66 Year
  Sex: Male
  Weight: 78 kg

DRUGS (10)
  1. AXTIL [Concomitant]
  2. POLPRAZOL [Concomitant]
     Active Substance: OMEPRAZOLE
  3. NEBILET [Concomitant]
     Active Substance: NEBIVOLOL
  4. POLOCARD [Concomitant]
     Active Substance: ASPIRIN
  5. DORETA [Concomitant]
     Active Substance: ACETAMINOPHEN\TRAMADOL HYDROCHLORIDE
  6. IPILIMUMAB [Suspect]
     Active Substance: IPILIMUMAB
     Indication: RENAL CELL CARCINOMA
     Dosage: 77 MG, UNK
     Route: 042
     Dates: start: 20180220
  7. PANTOPRAZOLUM [Concomitant]
  8. CABOZANTINIB [Suspect]
     Active Substance: CABOZANTINIB
     Indication: RENAL CELL CARCINOMA
     Dosage: 40 MG, QD
     Route: 048
     Dates: start: 20180220
  9. NIVOLUMAB [Suspect]
     Active Substance: NIVOLUMAB
     Indication: RENAL CELL CARCINOMA
     Dosage: 231 MG, UNK
     Route: 042
     Dates: start: 20180220
  10. METYPRED [Concomitant]
     Active Substance: METHYLPREDNISOLONE

REACTIONS (1)
  - Pneumocystis jirovecii infection [Not Recovered/Not Resolved]

NARRATIVE: CASE EVENT DATE: 20180607
